FAERS Safety Report 6085575-1 (Version None)
Quarter: 2009Q1

REPORT INFORMATION
  Report Type: 
  Country: None (occurrence: None)
  Receive Date: 20090217
  Receipt Date: 20090217
  Transmission Date: 20090719
  Serious: Yes (Disabling)
  Sender: FDA-Public Use
  Company Number: None

PATIENT
  Age: 77 Year
  Sex: Female

DRUGS (1)
  1. NICARDIPINE HYDROCHLORIDE [Suspect]
     Indication: HYPERTENSION
     Dosage: CONTINUOUS IV DRIP
     Route: 041
     Dates: start: 20081110, end: 20081113

REACTIONS (6)
  - BLISTER [None]
  - CELLULITIS [None]
  - INFUSION SITE EXTRAVASATION [None]
  - SKIN GRAFT [None]
  - SKIN ULCER [None]
  - SOFT TISSUE NECROSIS [None]
